FAERS Safety Report 25585963 (Version 1)
Quarter: 2025Q3

REPORT INFORMATION
  Report Type: Spontaneous
  Country: US (occurrence: None)
  Receive Date: 20250718
  Receipt Date: 20250718
  Transmission Date: 20251021
  Serious: Yes (Hospitalization)
  Sender: FDA-CTU
  Company Number: None

PATIENT
  Age: 56 Year
  Sex: Female
  Weight: 84.6 kg

DRUGS (2)
  1. AMBRISENTAN [Suspect]
     Active Substance: AMBRISENTAN
     Indication: Pulmonary arterial hypertension
     Dosage: 10 MG DAILY ORAL
     Route: 048
     Dates: start: 20201118
  2. REMODULIN [Suspect]
     Active Substance: TREPROSTINIL

REACTIONS (3)
  - Catheter management [None]
  - Headache [None]
  - Malaise [None]

NARRATIVE: CASE EVENT DATE: 20250712
